FAERS Safety Report 18259325 (Version 1)
Quarter: 2020Q3

REPORT INFORMATION
  Report Type: Report from Study
  Country: None (occurrence: IN)
  Receive Date: 20200911
  Receipt Date: 20200911
  Transmission Date: 20201103
  Serious: Yes (Hospitalization, Other)
  Sender: FDA-Public Use
  Company Number: IN-ABBVIE-19K-078-3175560-00

PATIENT
  Age: 47 Year
  Sex: Male
  Weight: 67.5 kg

DRUGS (4)
  1. IMBRUVICA [Suspect]
     Active Substance: IBRUTINIB
     Indication: MANTLE CELL LYMPHOMA REFRACTORY
     Dosage: 120^S/ 4 CAPS/DAY
     Route: 048
     Dates: start: 20190925, end: 20191116
  2. VENETOCLAX. [Concomitant]
     Active Substance: VENETOCLAX
     Indication: MANTLE CELL LYMPHOMA
     Route: 048
     Dates: start: 20200727
  3. VENETOCLAX. [Concomitant]
     Active Substance: VENETOCLAX
     Route: 048
     Dates: start: 20200728
  4. IMBRUVICA [Suspect]
     Active Substance: IBRUTINIB
     Dosage: 1 CAP/DAY
     Route: 048
     Dates: start: 202008

REACTIONS (4)
  - Drug ineffective [Unknown]
  - Lymphadenopathy [Unknown]
  - Thrombocytopenia [Unknown]
  - Mantle cell lymphoma [Unknown]

NARRATIVE: CASE EVENT DATE: 20191116
